FAERS Safety Report 5870701-7 (Version None)
Quarter: 2008Q3

REPORT INFORMATION
  Report Type: 
  Country: None (occurrence: None)
  Receive Date: 20080904
  Receipt Date: 20080904
  Transmission Date: 20090109
  Serious: Yes (Hospitalization)
  Sender: FDA-Public Use
  Company Number: PHEH1996US06053

PATIENT
  Sex: Female
  Weight: 66.6 kg

DRUGS (3)
  1. SANDIMMUNE [Suspect]
     Route: 048
     Dates: start: 19950829, end: 19960614
  2. PRILOSEC [Concomitant]
  3. INSULIN [Concomitant]

REACTIONS (1)
  - TRANSPLANT REJECTION [None]
